FAERS Safety Report 4533274-7 (Version None)
Quarter: 2004Q4

REPORT INFORMATION
  Report Type: 
  Country: None (occurrence: None)
  Receive Date: 20041210
  Receipt Date: 20040812
  Transmission Date: 20050328
  Serious: Yes (Other)
  Sender: FDA-Public Use
  Company Number: A03200402712

PATIENT
  Age: 56 Year
  Sex: Male
  Weight: 123.832 kg

DRUGS (8)
  1. ELOXATIN [Suspect]
     Indication: COLORECTAL CANCER
     Dosage: 18 OTHER - INTRAVENOUS NOS
     Route: 042
     Dates: start: 20040811, end: 20040811
  2. ELOXATIN [Suspect]
     Indication: METASTASES TO LIVER
     Dosage: 18 OTHER - INTRAVENOUS NOS
     Route: 042
     Dates: start: 20040811, end: 20040811
  3. FLUOROURACIL [Concomitant]
  4. LEUCOVORIN [Concomitant]
  5. METHYLPREDNISOLONE SODIUM SUCCINATE [Concomitant]
  6. DIPHENYDRAMINE HYDROCHLORIDE [Concomitant]
  7. FAMOTIDINE [Concomitant]
  8. GRANISETRON [Concomitant]

REACTIONS (9)
  - BLOOD PRESSURE INCREASED [None]
  - CHEST PAIN [None]
  - FLUSHING [None]
  - HYPERHIDROSIS [None]
  - HYPERSENSITIVITY [None]
  - NAUSEA [None]
  - OXYGEN SATURATION ABNORMAL [None]
  - PRURITUS GENERALISED [None]
  - SWOLLEN TONGUE [None]
